FAERS Safety Report 8605309-3 (Version None)
Quarter: 2012Q3

REPORT INFORMATION
  Report Type: 
  Country: None (occurrence: None)
  Receive Date: 20120820
  Receipt Date: 20120806
  Transmission Date: 20120928
  Serious: No
  Sender: FDA-Public Use
  Company Number: US-BAYER-2012-081128

PATIENT
  Age: 57 Year
  Sex: Female
  Weight: 113 kg

DRUGS (6)
  1. LEVOTHYROXINE SODIUM [Concomitant]
  2. METFORMIN HCL [Concomitant]
  3. OMEPRAZOLE [Concomitant]
  4. ALEVE (CAPLET) [Suspect]
     Indication: ANALGESIC THERAPY
     Dosage: UNK, PRN
     Route: 048
     Dates: end: 20120730
  5. MULTI-VITAMIN [Concomitant]
  6. VITAMIN D [Concomitant]

REACTIONS (5)
  - HYPOAESTHESIA [None]
  - CHILLS [None]
  - VOMITING [None]
  - PRURITUS [None]
  - DIARRHOEA [None]
